FAERS Safety Report 16493509 (Version 1)
Quarter: 2019Q2

REPORT INFORMATION
  Report Type: Spontaneous
  Country: FR (occurrence: FR)
  Receive Date: 20190628
  Receipt Date: 20190628
  Transmission Date: 20190711
  Serious: Yes (Other)
  Sender: FDA-Public Use
  Company Number: FR-SUN PHARMACEUTICAL INDUSTRIES LTD-2019RR-212034

PATIENT
  Age: 61 Year
  Sex: Male

DRUGS (2)
  1. PARACETAMOL [Suspect]
     Active Substance: ACETAMINOPHEN
     Indication: PAIN
     Dosage: ()
     Route: 048
     Dates: start: 20190515, end: 20190520
  2. DAFALGAN CODEINE [Suspect]
     Active Substance: ACETAMINOPHEN\CODEINE PHOSPHATE
     Indication: PAIN
     Dosage: 1 DOSAGE FORM, UNK
     Route: 048
     Dates: start: 20190520

REACTIONS (2)
  - Pancreatitis acute [Not Recovered/Not Resolved]
  - Lithiasis [Not Recovered/Not Resolved]

NARRATIVE: CASE EVENT DATE: 20190520
